FAERS Safety Report 9435152 (Version 1)
Quarter: 2013Q3

REPORT INFORMATION
  Report Type: Spontaneous
  Country: GB (occurrence: None)
  Receive Date: 20130730
  Receipt Date: 20130730
  Transmission Date: 20140515
  Serious: Yes (Hospitalization)
  Sender: FDA-Public Use
  Company Number: GER/UKI/130032701

PATIENT
  Age: 17 Year
  Sex: Male

DRUGS (1)
  1. CETIRIZINE (CETIRIZINE) [Suspect]
     Indication: SEASONAL ALLERGY

REACTIONS (1)
  - Hepatitis [None]
